FAERS Safety Report 6120516-X (Version None)
Quarter: 2009Q1

REPORT INFORMATION
  Report Type: 
  Country: None (occurrence: None)
  Receive Date: 20090317
  Receipt Date: 20090310
  Transmission Date: 20090719
  Serious: Yes (Hospitalization, Other)
  Sender: FDA-Public Use
  Company Number: DE-BAYER-200915838GPV

PATIENT
  Age: 65 Year
  Sex: Female
  Weight: 90 kg

DRUGS (7)
  1. CIPROFLOXACIN HCL [Suspect]
     Indication: GASTROENTERITIS
     Route: 048
     Dates: start: 20090104, end: 20090110
  2. RAMIPRIL [Interacting]
     Indication: HYPERTENSION
     Route: 048
  3. DIGITOXIN TAB [Concomitant]
     Indication: CARDIAC FAILURE
     Route: 048
  4. EUTHYROX [Concomitant]
     Indication: HYPOTHYROIDISM
     Route: 048
  5. HYDROCHLOROTHIAZIDE [Concomitant]
     Indication: CARDIAC FAILURE
     Route: 048
  6. METHOHEXITAL [Concomitant]
     Indication: CARDIOVERSION
     Route: 048
  7. TORSEMIDE [Concomitant]
     Indication: CARDIAC FAILURE
     Route: 048

REACTIONS (3)
  - ATRIAL FIBRILLATION [None]
  - CHEST PAIN [None]
  - DYSPNOEA [None]
